FAERS Safety Report 10731216 (Version 2)
Quarter: 2015Q1

REPORT INFORMATION
  Report Type: Spontaneous
  Country: US (occurrence: US)
  Receive Date: 20150122
  Receipt Date: 20150210
  Transmission Date: 20150721
  Serious: Yes (Other)
  Sender: FDA-Public Use
  Company Number: ALCN2015US000712

PATIENT
  Age: 69 Year
  Sex: Male

DRUGS (3)
  1. LATANOPROST. [Suspect]
     Active Substance: LATANOPROST
     Indication: OPEN ANGLE GLAUCOMA
     Dosage: 1 UNK, UNK
     Route: 047
  2. BETAXOLOL HCL [Suspect]
     Active Substance: BETAXOLOL
     Indication: OPEN ANGLE GLAUCOMA
     Dosage: 1 UNK, UNK
     Route: 047
  3. PILOCARPINE HCL [Suspect]
     Active Substance: PILOCARPINE HYDROCHLORIDE
     Indication: OPEN ANGLE GLAUCOMA
     Dosage: 1 UNK, UNK
     Route: 047

REACTIONS (2)
  - Ophthalmic herpes simplex [Recovered/Resolved]
  - Drug ineffective [Recovered/Resolved]
